FAERS Safety Report 16462655 (Version 1)
Quarter: 2019Q2

REPORT INFORMATION
  Report Type: Spontaneous
  Country: US (occurrence: US)
  Receive Date: 20190621
  Receipt Date: 20190621
  Transmission Date: 20190711
  Serious: Yes (Death, Life-Threatening, Other)
  Sender: FDA-Public Use
  Company Number: US-TORRENT-00008897

PATIENT
  Age: 25 Year
  Sex: Female

DRUGS (3)
  1. LITHIUM. [Interacting]
     Active Substance: LITHIUM
     Indication: ANXIETY
     Dosage: UNKNOWN
  2. FLUOXETINE [Interacting]
     Active Substance: FLUOXETINE HYDROCHLORIDE
     Indication: DEPRESSION
     Dosage: UNKNOWN
  3. 25INBOME [Suspect]
     Active Substance: 25I-NBOME
     Indication: SUBSTANCE USE
     Dosage: PSYCHOTROPIC DRUG 25INBOME
     Route: 055

REACTIONS (8)
  - Speech disorder [Unknown]
  - Ataxia [Fatal]
  - Cardio-respiratory arrest [Fatal]
  - Tachypnoea [Fatal]
  - Respiration abnormal [Fatal]
  - Serotonin syndrome [Fatal]
  - Drug interaction [Fatal]
  - Staring [Fatal]
